FAERS Safety Report 16689799 (Version 1)
Quarter: 2019Q3

REPORT INFORMATION
  Report Type: Spontaneous
  Country: US (occurrence: US)
  Receive Date: 20190809
  Receipt Date: 20190809
  Transmission Date: 20191004
  Serious: No
  Sender: FDA-Public Use
  Company Number: US-SUNOVION-2019SUN003176

PATIENT
  Sex: Male

DRUGS (3)
  1. AMBIEN [Concomitant]
     Active Substance: ZOLPIDEM TARTRATE
  2. LUNESTA [Suspect]
     Active Substance: ESZOPICLONE
     Route: 048
  3. SONATA [Concomitant]
     Active Substance: ZALEPLON

REACTIONS (2)
  - Insomnia [Unknown]
  - Drug ineffective [Unknown]
